FAERS Safety Report 5127324-7 (Version None)
Quarter: 2006Q4

REPORT INFORMATION
  Report Type: 
  Country: None (occurrence: None)
  Receive Date: 20061010
  Receipt Date: 20060525
  Transmission Date: 20070319
  Serious: Yes (Other)
  Sender: FDA-Public Use
  Company Number: CHNY2006CA01639

PATIENT
  Age: 32 Year
  Sex: Female

DRUGS (1)
  1. BUCKLEY'S MIXTURE (NCH)(AMMONIUM CARBONATE, POTASSIUM BICARBONATE, MEN [Suspect]
     Indication: COUGH
     Dosage: 10 ML, EVERY 2-3 HOURS, ORAL
     Route: 048
     Dates: start: 20060515, end: 20060518

REACTIONS (2)
  - DYSPNOEA [None]
  - MUSCLE RIGIDITY [None]
